FAERS Safety Report 10792135 (Version 1)
Quarter: 2015Q1

REPORT INFORMATION
  Report Type: Spontaneous
  Country: US (occurrence: US)
  Receive Date: 20150213
  Receipt Date: 20150213
  Transmission Date: 20150721
  Serious: No
  Sender: FDA-Public Use
  Company Number: US-GLAXOSMITHKLINE-A1077602A

PATIENT

DRUGS (1)
  1. ALLI [Suspect]
     Active Substance: ORLISTAT
     Indication: WEIGHT DECREASED

REACTIONS (7)
  - Dehydration [Unknown]
  - Gastrointestinal disorder [Unknown]
  - Vomiting [Unknown]
  - Faecal incontinence [Unknown]
  - Urticaria [Unknown]
  - Adverse drug reaction [Unknown]
  - Malaise [Recovered/Resolved]
